FAERS Safety Report 9916502 (Version 2)
Quarter: 2014Q1

REPORT INFORMATION
  Report Type: Spontaneous
  Country: GB (occurrence: GB)
  Receive Date: 20140221
  Receipt Date: 20140221
  Transmission Date: 20141002
  Serious: Yes (Death)
  Sender: FDA-Public Use
  Company Number: GB-INCYTE CORPORATION-2013IN001750

PATIENT
  Sex: Male

DRUGS (2)
  1. JAKAVI [Suspect]
     Indication: MYELOFIBROSIS
     Dosage: 15 MG, BID
     Route: 065
     Dates: start: 20130802
  2. JAKAVI [Suspect]
     Dosage: 5 MG, UNK
     Route: 065

REACTIONS (4)
  - Death [Fatal]
  - Anaemia [Unknown]
  - Neutropenia [Unknown]
  - Full blood count decreased [Recovered/Resolved]
